FAERS Safety Report 8074597-7 (Version None)
Quarter: 2012Q1

REPORT INFORMATION
  Report Type: 
  Country: None (occurrence: None)
  Receive Date: 20120126
  Receipt Date: 20120118
  Transmission Date: 20120608
  Serious: No
  Sender: FDA-Public Use
  Company Number: US-B.I. PHARMACEUTICALS,INC./RIDGEFIELD-2006-BP-08946BP

PATIENT
  Sex: Male
  Weight: 91.63 kg

DRUGS (2)
  1. ADVAIR DISKUS 100/50 [Concomitant]
     Indication: ASTHMA
  2. MIRAPEX [Suspect]
     Indication: ESSENTIAL TREMOR
     Route: 048
     Dates: start: 20040607, end: 20060809

REACTIONS (10)
  - PAIN [None]
  - FATIGUE [None]
  - COMPULSIVE SHOPPING [None]
  - EMOTIONAL DISTRESS [None]
  - JUDGEMENT IMPAIRED [None]
  - GAMBLING [None]
  - HYPERSEXUALITY [None]
  - COMPULSIVE SEXUAL BEHAVIOUR [None]
  - PICA [None]
  - OBSESSIVE-COMPULSIVE DISORDER [None]
